FAERS Safety Report 7919683-4 (Version None)
Quarter: 2011Q4

REPORT INFORMATION
  Report Type: 
  Country: None (occurrence: None)
  Receive Date: 20111117
  Receipt Date: 20111108
  Transmission Date: 20120403
  Serious: Yes (Other)
  Sender: FDA-Public Use
  Company Number: US-US-EMD SERONO, INC.-7091833

PATIENT
  Sex: Female

DRUGS (5)
  1. REBIF [Suspect]
     Indication: PRODUCT USED FOR UNKNOWN INDICATION
     Route: 058
     Dates: start: 20111003
  2. IBUUPROFEN [Concomitant]
     Indication: PREMEDICATION
  3. REBIF [Suspect]
     Route: 058
  4. UNISOM [Concomitant]
     Indication: INSOMNIA
  5. BENADRYL [Concomitant]
     Indication: INSOMNIA

REACTIONS (6)
  - INSOMNIA [None]
  - INJECTION SITE REACTION [None]
  - MOOD SWINGS [None]
  - PHYSICAL ASSAULT [None]
  - PAIN [None]
  - FEELING COLD [None]
